FAERS Safety Report 8271096-4 (Version None)
Quarter: 2012Q1

REPORT INFORMATION
  Report Type: 
  Country: None (occurrence: None)
  Receive Date: 20120327
  Receipt Date: 20090817
  Transmission Date: 20120608
  Serious: Yes (Other)
  Sender: FDA-Public Use
  Company Number: PHEH2009US09457

PATIENT
  Sex: Female

DRUGS (1)
  1. GLEEVEC [Suspect]
     Dates: start: 20060101

REACTIONS (3)
  - PLEURAL EFFUSION [None]
  - URTICARIA [None]
  - RASH [None]
